FAERS Safety Report 7286442-8 (Version None)
Quarter: 2011Q1

REPORT INFORMATION
  Report Type: 
  Country: None (occurrence: None)
  Receive Date: 20110210
  Receipt Date: 20110127
  Transmission Date: 20110831
  Serious: Yes (Other)
  Sender: FDA-Public Use
  Company Number: TW-MYLANLABS-2011S1002184

PATIENT
  Age: 34 Year
  Sex: Female

DRUGS (1)
  1. MEFOXIN [Suspect]
     Route: 042

REACTIONS (2)
  - HYPERSENSITIVITY [None]
  - PHLEBITIS [None]
